FAERS Safety Report 24292832 (Version 1)
Quarter: 2024Q3

REPORT INFORMATION
  Report Type: Spontaneous
  Country: US (occurrence: None)
  Receive Date: 20240906
  Receipt Date: 20240906
  Transmission Date: 20241016
  Serious: No
  Sender: DOMPE FARMACEUTICI
  Company Number: US-FARMAPROD-202308-202310-3117

PATIENT
  Age: 82 Year
  Sex: Female

DRUGS (23)
  1. OXERVATE [Suspect]
     Active Substance: CENEGERMIN-BKBJ
     Indication: Neurotrophic keratopathy
     Route: 047
     Dates: start: 20231010
  2. CRANBERRY [Concomitant]
     Active Substance: CRANBERRY
  3. VITAMIN D3 [Concomitant]
     Active Substance: CHOLECALCIFEROL
  4. FIBER THERAPY (CALCIUM POLYCARBOPHIL) [Concomitant]
     Active Substance: CALCIUM POLYCARBOPHIL
  5. OMEGA-3 ACIDS [Concomitant]
     Active Substance: OMEGA-3 FATTY ACIDS
  6. CALCIUM\MAGNESIUM [Concomitant]
     Active Substance: CALCIUM\MAGNESIUM
     Dosage: 300 - 300 MG
  7. CALCIUM [Concomitant]
     Active Substance: CALCIUM
  8. SYSTANE GEL [Concomitant]
  9. ZIRGAN [Concomitant]
     Active Substance: GANCICLOVIR
  10. RESTASIS [Concomitant]
     Active Substance: CYCLOSPORINE
     Dosage: DROPERETTE
  11. VIGAMOX [Concomitant]
     Active Substance: MOXIFLOXACIN HYDROCHLORIDE
  12. GABAPENTIN [Concomitant]
     Active Substance: GABAPENTIN
  13. ACYCLOVIR [Concomitant]
     Active Substance: ACYCLOVIR
  14. ASPIRIN [Concomitant]
     Active Substance: ASPIRIN
  15. ZETIA [Concomitant]
     Active Substance: EZETIMIBE
  16. AMITRIPTYLINE HYDROCHLORIDE [Concomitant]
     Active Substance: AMITRIPTYLINE HYDROCHLORIDE
  17. SINGULAIR [Concomitant]
     Active Substance: MONTELUKAST SODIUM
  18. CRESTOR [Concomitant]
     Active Substance: ROSUVASTATIN CALCIUM
  19. QVAR REDIHALER [Concomitant]
     Active Substance: BECLOMETHASONE DIPROPIONATE
     Dosage: HYDROFLUOROALKANE, AEROBA
  20. SYNTHROID [Concomitant]
     Active Substance: LEVOTHYROXINE SODIUM
  21. NEXIUM [Concomitant]
     Active Substance: ESOMEPRAZOLE MAGNESIUM
  22. LISINOPRIL [Concomitant]
     Active Substance: LISINOPRIL
  23. CARVEDILOL [Concomitant]
     Active Substance: CARVEDILOL

REACTIONS (4)
  - Therapy interrupted [Unknown]
  - Product dose omission issue [Unknown]
  - Hypoaesthesia oral [Recovered/Resolved]
  - Oropharyngeal discomfort [Recovered/Resolved]

NARRATIVE: CASE EVENT DATE: 20231001
